FAERS Safety Report 8998655 (Version 2)
Quarter: 2013Q1

REPORT INFORMATION
  Report Type: Spontaneous
  Country: US (occurrence: US)
  Receive Date: 20130103
  Receipt Date: 20130107
  Transmission Date: 20140127
  Serious: No
  Sender: FDA-Public Use
  Company Number: US-009507513-1212USA008576

PATIENT
  Age: 25 Year
  Sex: Female
  Weight: 86.62 kg

DRUGS (1)
  1. IMPLANON [Suspect]
     Indication: CONTRACEPTION
     Dosage: EVERY 3 YEAR
     Route: 059
     Dates: start: 20091214

REACTIONS (3)
  - Medical device complication [Unknown]
  - Incorrect drug administration duration [Unknown]
  - No adverse event [Unknown]
